FAERS Safety Report 18999362 (Version 1)
Quarter: 2021Q1

REPORT INFORMATION
  Report Type: Report from Study
  Country: ES (occurrence: ES)
  Receive Date: 20210311
  Receipt Date: 20210311
  Transmission Date: 20210420
  Serious: Yes (Death)
  Sender: FDA-Public Use
  Company Number: ES-VER-202100001

PATIENT
  Age: 49 Year
  Sex: Male
  Weight: 82 kg

DRUGS (3)
  1. GEMCITABINE. [Concomitant]
     Active Substance: GEMCITABINE
     Indication: PRODUCT USED FOR UNKNOWN INDICATION
     Route: 042
     Dates: start: 20190205, end: 20190705
  2. TRIPTORELIN PAMOATE [Suspect]
     Active Substance: TRIPTORELIN PAMOATE
     Indication: PROSTATE CANCER
     Route: 030
     Dates: start: 20180221, end: 20190227
  3. BICALUTAMIDE. [Concomitant]
     Active Substance: BICALUTAMIDE
     Indication: PRODUCT USED FOR UNKNOWN INDICATION
     Route: 048
     Dates: start: 20180221, end: 20190711

REACTIONS (1)
  - Neoplasm progression [Fatal]
